FAERS Safety Report 9472099 (Version 1)
Quarter: 2013Q3

REPORT INFORMATION
  Report Type: Spontaneous
  Country: US (occurrence: US)
  Receive Date: 20130823
  Receipt Date: 20130823
  Transmission Date: 20140515
  Serious: No
  Sender: FDA-Public Use
  Company Number: US-009507513-1308USA002970

PATIENT
  Age: 73 Year
  Sex: 0

DRUGS (6)
  1. ASMANEX TWISTHALER [Suspect]
     Indication: ASTHMA
     Dosage: 220 MICROGRAM/2 PUFFS DAILY
     Route: 055
     Dates: start: 201304
  2. COZAAR [Concomitant]
     Dosage: DOSAGE UNSPECIFIED
  3. WARFARIN [Concomitant]
     Dosage: DOSAGE UNSPECIFIED
  4. CRESTOR [Concomitant]
     Dosage: DOSAGE UNSPECIFIED
  5. CELEXA [Concomitant]
     Dosage: DOSAGE UNSPECIFIED
  6. ACTONEL [Concomitant]
     Dosage: DOSAGE UNSPECIFIED

REACTIONS (2)
  - Chest discomfort [Not Recovered/Not Resolved]
  - Dry mouth [Not Recovered/Not Resolved]
